FAERS Safety Report 17142046 (Version 2)
Quarter: 2020Q1

REPORT INFORMATION
  Report Type: Spontaneous
  Country: US (occurrence: US)
  Receive Date: 20191211
  Receipt Date: 20200108
  Transmission Date: 20200409
  Serious: Yes (Death, Life-Threatening, Hospitalization, Disabling, Other)
  Sender: FDA-Public Use
  Company Number: US-ASTRAZENECA-2019SF77426

PATIENT
  Age: 71 Year
  Sex: Female
  Weight: 69 kg

DRUGS (2)
  1. LYNPARZA [Suspect]
     Active Substance: OLAPARIB
     Indication: OVARIAN CANCER
     Route: 048
     Dates: start: 20190923, end: 20190923
  2. LYNPARZA [Suspect]
     Active Substance: OLAPARIB
     Indication: OVARIAN CANCER
     Route: 048
     Dates: start: 20191002, end: 20191006

REACTIONS (2)
  - Pneumonitis [Fatal]
  - Haemorrhage [Unknown]

NARRATIVE: CASE EVENT DATE: 2019
